FAERS Safety Report 24277505 (Version 2)
Quarter: 2024Q3

REPORT INFORMATION
  Report Type: Spontaneous
  Country: US (occurrence: US)
  Receive Date: 20240903
  Receipt Date: 20240918
  Transmission Date: 20241017
  Serious: Yes (Hospitalization, Other)
  Sender: INTRA-CELLULAR THERAPIES
  Company Number: US-INTRA-CELLULAR THERAPIES, INC.-2024ICT01387

PATIENT
  Age: 69 Year
  Sex: Female
  Weight: 71.655 kg

DRUGS (9)
  1. CAPLYTA [Suspect]
     Active Substance: LUMATEPERONE
     Indication: Psychotic disorder
     Dosage: 21 MG
     Route: 048
     Dates: end: 20240415
  2. CAPLYTA [Suspect]
     Active Substance: LUMATEPERONE
     Indication: Hallucination, visual
     Dosage: 42 MG, 1X/DAY
     Route: 048
     Dates: start: 20240416, end: 20240627
  3. ATORVASTATIN [Concomitant]
     Active Substance: ATORVASTATIN
  4. IRON [Concomitant]
     Active Substance: IRON
  5. CREON [Concomitant]
     Active Substance: PANCRELIPASE AMYLASE\PANCRELIPASE LIPASE\PANCRELIPASE PROTEASE
  6. ATIVAN [Concomitant]
     Active Substance: LORAZEPAM
  7. SEROQUEL [Concomitant]
     Active Substance: QUETIAPINE FUMARATE
  8. PAXIL [Concomitant]
     Active Substance: PAROXETINE HYDROCHLORIDE
  9. INGREZZA [Concomitant]
     Active Substance: VALBENAZINE

REACTIONS (3)
  - Volvulus [Recovered/Resolved]
  - Diarrhoea [Recovered/Resolved]
  - Off label use [Recovered/Resolved]

NARRATIVE: CASE EVENT DATE: 20240101
